FAERS Safety Report 12958181 (Version 2)
Quarter: 2017Q1

REPORT INFORMATION
  Report Type: Spontaneous
  Country: CA (occurrence: US)
  Receive Date: 20161120
  Receipt Date: 20170212
  Transmission Date: 20170428
  Serious: Yes (Other)
  Sender: FDA-Public Use
  Company Number: US-CONCORDIA PHARMACEUTICALS INC.-GSH201611-005882

PATIENT
  Age: 84 Year
  Sex: Female
  Weight: 60 kg

DRUGS (13)
  1. LEFLUNOMLDE [Concomitant]
  2. DEPO-MEDROL [Concomitant]
     Active Substance: METHYLPREDNISOLONE ACETATE
  3. SULFASALAZINE. [Concomitant]
     Active Substance: SULFASALAZINE
  4. ARAVA [Concomitant]
     Active Substance: LEFLUNOMIDE
  5. HYDROXYCHLOROQUINE [Concomitant]
     Active Substance: HYDROXYCHLOROQUINE
  6. PLAQUENIL [Suspect]
     Active Substance: HYDROXYCHLOROQUINE SULFATE
     Indication: PRODUCT USED FOR UNKNOWN INDICATION
     Route: 065
  7. TELMISARTAN. [Concomitant]
     Active Substance: TELMISARTAN
  8. TYLENOL ARTHRITIS PAIN [Concomitant]
     Active Substance: ACETAMINOPHEN
  9. METHOTREXATE. [Suspect]
     Active Substance: METHOTREXATE
     Indication: RHEUMATOID ARTHRITIS
     Route: 048
  10. MELOXICAM. [Concomitant]
     Active Substance: MELOXICAM
  11. SYSTANE (HYPROMELLOSE 2910 (4000 MPA.S)) [Concomitant]
     Active Substance: HYPROMELLOSE 2910 (4000 MPA.S)
  12. VITAMIN D [Concomitant]
     Active Substance: CHOLECALCIFEROL
  13. ENBREL [Suspect]
     Active Substance: ETANERCEPT
     Indication: RHEUMATOID ARTHRITIS
     Route: 058
     Dates: start: 201512, end: 201609

REACTIONS (13)
  - Arthralgia [Recovering/Resolving]
  - Activities of daily living impaired [Unknown]
  - Joint effusion [Unknown]
  - Musculoskeletal disorder [Not Recovered/Not Resolved]
  - Grip strength decreased [Recovering/Resolving]
  - Urinary incontinence [Recovering/Resolving]
  - Fatigue [Unknown]
  - Neck pain [Not Recovered/Not Resolved]
  - Joint swelling [Unknown]
  - Cataract [Unknown]
  - Musculoskeletal pain [Unknown]
  - Local swelling [Not Recovered/Not Resolved]
  - Drug ineffective [Unknown]

NARRATIVE: CASE EVENT DATE: 20160716
